FAERS Safety Report 16786577 (Version 1)
Quarter: 2019Q3

REPORT INFORMATION
  Report Type: Spontaneous
  Country: CN (occurrence: CN)
  Receive Date: 20190909
  Receipt Date: 20190909
  Transmission Date: 20191005
  Serious: Yes (Other)
  Sender: FDA-Public Use
  Company Number: CN-BAXTER-2019BAX017481

PATIENT
  Age: 36 Year
  Sex: Female
  Weight: 66 kg

DRUGS (5)
  1. RECOMBINANT HUMAN GRANULOCYTE COLONY-STIMULATING FACTOR (RHG-CSF) [Suspect]
     Active Substance: GRANULOCYTE COLONY-STIMULATING FACTOR NOS
     Indication: ADVERSE EVENT
     Route: 065
  2. 0.9% SODIUM CHLORIDE INJECTION [Suspect]
     Active Substance: SODIUM CHLORIDE
     Indication: MEDICATION DILUTION
     Dosage: DILUENT FOR CYCLOPHOSPHAMIDE OF 0.9 GRAM
     Route: 041
     Dates: start: 20190725, end: 20190725
  3. 0.9% SODIUM CHLORIDE INJECTION [Suspect]
     Active Substance: SODIUM CHLORIDE
     Dosage: DILUENT FOR AISU OF 120 MG
     Route: 041
     Dates: start: 20190725, end: 20190725
  4. AISU [Suspect]
     Active Substance: DOCETAXEL
     Indication: BREAST CANCER FEMALE
     Dosage: DILUTED WITH 0.9% SODIUM CHLORIDE [NS] OF 250 ML
     Route: 041
     Dates: start: 20190725, end: 20190725
  5. ENDOXAN [Suspect]
     Active Substance: CYCLOPHOSPHAMIDE
     Indication: BREAST CANCER FEMALE
     Dosage: DILUTED WITH 0.9% SODIUM CHLORIDE [NS] OF 50 ML
     Route: 041
     Dates: start: 20190725, end: 20190725

REACTIONS (1)
  - Bone marrow failure [Recovered/Resolved]

NARRATIVE: CASE EVENT DATE: 20190731
